FAERS Safety Report 8602020-X (Version None)
Quarter: 2012Q3

REPORT INFORMATION
  Report Type: 
  Country: None (occurrence: None)
  Receive Date: 20120817
  Receipt Date: 20120813
  Transmission Date: 20120928
  Serious: Yes (Hospitalization)
  Sender: FDA-Public Use
  Company Number: FR-PFIZER INC-2012196639

PATIENT
  Age: 2 Year
  Sex: Female

DRUGS (9)
  1. CLAFORAN [Concomitant]
     Indication: PHARYNGEAL ABSCESS
     Dosage: UNK
     Dates: start: 20120629
  2. VANCOMYCIN [Suspect]
     Indication: BRONCHITIS
     Dosage: UNK
     Dates: start: 20120712, end: 20120718
  3. AMIKACIN [Suspect]
     Indication: BRONCHITIS
     Dosage: UNK
     Dates: start: 20120710, end: 20120718
  4. AUGMENTIN '500' [Suspect]
     Indication: PHARYNGEAL ABSCESS
     Dosage: UNK
     Dates: start: 20120630, end: 20120710
  5. SOLU-MEDROL [Concomitant]
     Indication: PHARYNGEAL ABSCESS
     Dosage: UNK
     Dates: start: 20120629
  6. AMOXICILLIN [Concomitant]
     Indication: BRONCHITIS
     Dosage: UNK
  7. FOSFOCINE [Concomitant]
     Indication: PHARYNGEAL ABSCESS
     Dosage: UNK
     Dates: start: 20120629
  8. CLARITHROMYCIN [Concomitant]
     Indication: BRONCHITIS
     Dosage: UNK
  9. TAZOBACTAM [Suspect]
     Indication: BRONCHITIS
     Dosage: UNK
     Dates: start: 20120710, end: 20120711

REACTIONS (2)
  - BLOOD ALKALINE PHOSPHATASE INCREASED [None]
  - GAMMA-GLUTAMYLTRANSFERASE INCREASED [None]
